FAERS Safety Report 5221071-9 (Version None)
Quarter: 2007Q1

REPORT INFORMATION
  Report Type: 
  Country: None (occurrence: None)
  Receive Date: 20070126
  Receipt Date: 20070126
  Transmission Date: 20070707
  Serious: Yes (Other)
  Sender: FDA-Public Use
  Company Number: US-GLAXOSMITHKLINE-A0636936A

PATIENT
  Age: 49 Year
  Sex: Male

DRUGS (1)
  1. COMMIT [Suspect]
     Dosage: 1LOZ SINGLE DOSE
     Route: 002

REACTIONS (2)
  - CHOKING [None]
  - RETCHING [None]
